FAERS Safety Report 5346628-6 (Version None)
Quarter: 2007Q2

REPORT INFORMATION
  Report Type: 
  Country: None (occurrence: None)
  Receive Date: 20070605
  Receipt Date: 20070530
  Transmission Date: 20071010
  Serious: Yes (Other)
  Sender: FDA-Public Use
  Company Number: US-PFIZER INC-2007032933

PATIENT
  Sex: Female
  Weight: 81.2 kg

DRUGS (21)
  1. XANAX [Suspect]
     Indication: ANXIETY
  2. ALPRAZOLAM [Suspect]
     Indication: ANXIETY
  3. CHANTIX [Suspect]
     Indication: SMOKING CESSATION THERAPY
  4. TRANXENE [Suspect]
  5. KLONOPIN [Suspect]
     Indication: ANXIETY
  6. DETROL LA [Concomitant]
  7. LANOXIN [Concomitant]
  8. ZANTAC [Concomitant]
  9. TOPROL-XL [Concomitant]
  10. NEXIUM [Concomitant]
  11. LASIX [Concomitant]
  12. PAXIL [Concomitant]
     Route: 065
  13. NITROTAB [Concomitant]
  14. POTASSIUM ACETATE [Concomitant]
  15. MAGNESIUM SULFATE [Concomitant]
  16. VISTARIL [Concomitant]
  17. ALLEGRA [Concomitant]
  18. LORCET-HD [Concomitant]
  19. ANTIBIOTICS [Concomitant]
  20. ALL OTHER THERAPEUTIC PRODUCTS [Concomitant]
  21. BACLOFEN [Concomitant]

REACTIONS (8)
  - ABNORMAL DREAMS [None]
  - BLINDNESS [None]
  - CARDIAC PACEMAKER INSERTION [None]
  - DYSPNOEA [None]
  - HEART RATE INCREASED [None]
  - HYPERSENSITIVITY [None]
  - HYPERTENSION [None]
  - SLEEP DISORDER [None]
